FAERS Safety Report 15330411 (Version 1)
Quarter: 2018Q3

REPORT INFORMATION
  Report Type: Spontaneous
  Country: US (occurrence: US)
  Receive Date: 20180829
  Receipt Date: 20180829
  Transmission Date: 20181010
  Serious: Yes (Life-Threatening)
  Sender: FDA-Public Use
  Company Number: US-ACS-001175

PATIENT
  Age: 53 Year
  Sex: Female

DRUGS (1)
  1. CEFTRIAXONE FOR INJECTION 1G [Suspect]
     Active Substance: CEFTRIAXONE
     Indication: URINARY TRACT INFECTION
     Route: 065
     Dates: start: 20180725

REACTIONS (6)
  - Pruritus [Unknown]
  - Heart rate increased [Unknown]
  - Dyspnoea [Unknown]
  - Erythema [Unknown]
  - Consciousness fluctuating [Unknown]
  - Blood pressure decreased [Unknown]
